FAERS Safety Report 6503101-7 (Version None)
Quarter: 2009Q4

REPORT INFORMATION
  Report Type: 
  Country: None (occurrence: None)
  Receive Date: 20091217
  Receipt Date: 20091209
  Transmission Date: 20100525
  Serious: Yes (Hospitalization, Other)
  Sender: FDA-Public Use
  Company Number: PHHY2009US54653

PATIENT
  Sex: Male

DRUGS (1)
  1. EXJADE [Suspect]
     Indication: IRON OVERLOAD
     Dosage: 1500 MG/DAY
     Route: 048
     Dates: start: 20090604, end: 20090820

REACTIONS (2)
  - PNEUMONIA [None]
  - SMALL INTESTINAL OBSTRUCTION [None]
